FAERS Safety Report 23680175 (Version 1)
Quarter: 2024Q1

REPORT INFORMATION
  Report Type: Spontaneous
  Country: BR (occurrence: BR)
  Receive Date: 20240327
  Receipt Date: 20240327
  Transmission Date: 20240409
  Serious: Yes (Other)
  Sender: FDA-Public Use
  Company Number: BR-ABBOTT-2024A-1379364

PATIENT
  Age: 60 Year
  Sex: Female
  Weight: 82 kg

DRUGS (1)
  1. SYNTHROID [Suspect]
     Active Substance: LEVOTHYROXINE SODIUM
     Indication: Hormone replacement therapy
     Dosage: TAKES DAILY IN FASTING 6H15 A.M
     Route: 048

REACTIONS (11)
  - Spinal operation [Unknown]
  - Thyroidectomy [Recovered/Resolved]
  - Hypertonic bladder [Unknown]
  - Diplopia [Unknown]
  - Intervertebral disc protrusion [Unknown]
  - General physical health deterioration [Unknown]
  - Malaise [Recovered/Resolved]
  - Femur fracture [Unknown]
  - Hormone level abnormal [Recovered/Resolved]
  - Hypertension [Recovered/Resolved]
  - Retinal injury [Unknown]

NARRATIVE: CASE EVENT DATE: 20240101
